FAERS Safety Report 7051207-9 (Version None)
Quarter: 2010Q4

REPORT INFORMATION
  Report Type: 
  Country: None (occurrence: None)
  Receive Date: 20101014
  Receipt Date: 20100928
  Transmission Date: 20110411
  Serious: Yes (Other)
  Sender: FDA-Public Use
  Company Number: ACO_02440_2010

PATIENT
  Sex: Female
  Weight: 52.6173 kg

DRUGS (7)
  1. AMPYRA [Suspect]
     Indication: GAIT DISTURBANCE
     Dosage: 10 MG BID ORAL
     Route: 048
     Dates: start: 20100601
  2. PREDNISONE [Suspect]
     Indication: MULTIPLE SCLEROSIS RELAPSE
     Dosage: DF
     Dates: start: 20100831
  3. BACLOFEN [Concomitant]
  4. SYNTHROID [Concomitant]
  5. CALCIUM [Concomitant]
  6. FISH OIL [Concomitant]
  7. NAPROXEN [Concomitant]

REACTIONS (3)
  - GINGIVAL BLISTER [None]
  - MULTIPLE SCLEROSIS RELAPSE [None]
  - STOMATITIS [None]
